FAERS Safety Report 9114841 (Version 1)
Quarter: 2013Q1

REPORT INFORMATION
  Report Type: Spontaneous
  Country: US (occurrence: None)
  Receive Date: 20130225
  Receipt Date: 20130225
  Transmission Date: 20140127
  Serious: Yes (Hospitalization)
  Sender: FDA-Public Use
  Company Number: None

PATIENT
  Age: 82 Year
  Sex: Female
  Weight: 68.49 kg

DRUGS (2)
  1. METHYLPREDNISOLONE ACETATE [Suspect]
     Indication: SPINAL COLUMN STENOSIS
     Dosage: 80MG/ML  PRN  EPIDURAL
     Route: 008
     Dates: start: 20120717, end: 20120926
  2. METHYLPREDNISOLONE ACETATE [Suspect]
     Indication: SACROILIITIS
     Dosage: 80MG/ML  PRN  EPIDURAL
     Route: 008
     Dates: start: 20120717, end: 20120926

REACTIONS (9)
  - Headache [None]
  - Asthenia [None]
  - Injection site pain [None]
  - Osteomyelitis [None]
  - Drug intolerance [None]
  - Extradural abscess [None]
  - Device related infection [None]
  - Product quality issue [None]
  - Wrong technique in drug usage process [None]
